FAERS Safety Report 14704250 (Version 1)
Quarter: 2018Q2

REPORT INFORMATION
  Report Type: Spontaneous
  Country: US (occurrence: US)
  Receive Date: 20180402
  Receipt Date: 20180402
  Transmission Date: 20180711
  Serious: No
  Sender: FDA-Public Use
  Company Number: US-ALLERGAN-1727510US

PATIENT
  Sex: Male

DRUGS (6)
  1. PLAVIX [Concomitant]
     Active Substance: CLOPIDOGREL BISULFATE
     Indication: PRODUCT USED FOR UNKNOWN INDICATION
     Dosage: UNK
     Route: 065
  2. BABY ASPIRIN [Concomitant]
     Active Substance: ASPIRIN
     Indication: PRODUCT USED FOR UNKNOWN INDICATION
     Dosage: UNK
     Route: 065
  3. VITAMIN D [Concomitant]
     Active Substance: CHOLECALCIFEROL
     Indication: PRODUCT USED FOR UNKNOWN INDICATION
     Dosage: UNK
     Route: 065
  4. CANASA [Suspect]
     Active Substance: MESALAMINE
     Dosage: UNK
     Route: 054
     Dates: start: 20170620
  5. CANASA [Suspect]
     Active Substance: MESALAMINE
     Indication: RADIATION PROCTITIS
     Dosage: UNK
     Route: 054
     Dates: start: 20170620
  6. CANASA [Suspect]
     Active Substance: MESALAMINE
     Dosage: UNK
     Route: 054
     Dates: start: 20170620

REACTIONS (7)
  - Procedural pain [Unknown]
  - Malabsorption from administration site [Unknown]
  - Off label use [Unknown]
  - Muscle spasms [Unknown]
  - Product use complaint [Unknown]
  - Product physical consistency issue [Unknown]
  - Haemorrhage [Unknown]
